FAERS Safety Report 6048794-6 (Version None)
Quarter: 2009Q1

REPORT INFORMATION
  Report Type: 
  Country: None (occurrence: None)
  Receive Date: 20090123
  Receipt Date: 20090112
  Transmission Date: 20090719
  Serious: Yes (Other)
  Sender: FDA-Public Use
  Company Number: US-MERCK-0710USA00866

PATIENT
  Sex: Male

DRUGS (1)
  1. MEVACOR [Suspect]
     Route: 065

REACTIONS (5)
  - DRUG HYPERSENSITIVITY [None]
  - HEPATIC FUNCTION ABNORMAL [None]
  - LIVER FUNCTION TEST ABNORMAL [None]
  - MYOSITIS [None]
  - SYSTEMIC LUPUS ERYTHEMATOSUS [None]
